FAERS Safety Report 16186314 (Version 2)
Quarter: 2019Q2

REPORT INFORMATION
  Report Type: Spontaneous
  Country: AR (occurrence: AR)
  Receive Date: 20190411
  Receipt Date: 20190424
  Transmission Date: 20190711
  Serious: Yes (Hospitalization, Other)
  Sender: FDA-Public Use
  Company Number: AR-ELI_LILLY_AND_COMPANY-AR201904004423

PATIENT
  Sex: Male

DRUGS (3)
  1. HUMULIN R [Suspect]
     Active Substance: INSULIN HUMAN
     Dosage: 30 IU, UNKNOWN
     Route: 058
  2. HUMULIN R [Suspect]
     Active Substance: INSULIN HUMAN
     Indication: DIABETES MELLITUS
     Dosage: 31 IU, UNKNOWN
     Route: 058
     Dates: start: 2008
  3. METFORMINA METFORMIN [Concomitant]
     Indication: DIABETES MELLITUS
     Dosage: 1000 MG, BID

REACTIONS (4)
  - Diabetic complication [Unknown]
  - Device failure [Unknown]
  - Blood glucose increased [Unknown]
  - Cardiovascular disorder [Unknown]
